APPROVED DRUG PRODUCT: DULOXETINE HYDROCHLORIDE
Active Ingredient: DULOXETINE HYDROCHLORIDE
Strength: EQ 40MG BASE
Dosage Form/Route: CAPSULE, DELAYED REL PELLETS;ORAL
Application: A203088 | Product #004 | TE Code: AB
Applicant: BRECKENRIDGE PHARMACEUTICAL INC
Approved: May 18, 2018 | RLD: No | RS: No | Type: RX